FAERS Safety Report 16976114 (Version 1)
Quarter: 2019Q4

REPORT INFORMATION
  Report Type: Spontaneous
  Country: US (occurrence: US)
  Receive Date: 20191030
  Receipt Date: 20191030
  Transmission Date: 20200122
  Serious: Yes (Other)
  Sender: FDA-Public Use
  Company Number: US-ASTRAZENECA-2019SF51241

PATIENT
  Sex: Female

DRUGS (2)
  1. BRILINTA [Suspect]
     Active Substance: TICAGRELOR
     Indication: INTRACRANIAL ANEURYSM
     Dosage: 60 MG, 2 PILLS A DAY
     Route: 048
     Dates: start: 2018
  2. BRILINTA [Suspect]
     Active Substance: TICAGRELOR
     Indication: STENT PLACEMENT
     Dosage: 60 MG, 2 PILLS A DAY
     Route: 048
     Dates: start: 2018

REACTIONS (2)
  - Intracranial aneurysm [Unknown]
  - Visual impairment [Unknown]
